FAERS Safety Report 15235147 (Version 1)
Quarter: 2018Q3

REPORT INFORMATION
  Report Type: Report from Study
  Country: None (occurrence: DE)
  Receive Date: 20180803
  Receipt Date: 20180803
  Transmission Date: 20181010
  Serious: Yes (Hospitalization)
  Sender: FDA-Public Use
  Company Number: DE-ABBVIE-18K-062-2440151-00

PATIENT
  Age: 76 Year
  Sex: Female

DRUGS (18)
  1. HUMIRA [Suspect]
     Active Substance: ADALIMUMAB
     Indication: RHEUMATIC DISORDER
     Route: 058
     Dates: start: 200304, end: 200509
  2. MTX [Suspect]
     Active Substance: METHOTREXATE SODIUM
     Route: 065
     Dates: end: 2016
  3. MTX [Suspect]
     Active Substance: METHOTREXATE SODIUM
     Indication: PRODUCT USED FOR UNKNOWN INDICATION
     Route: 065
     Dates: start: 199712
  4. HYDROXYCHLOROQUINE [Concomitant]
     Active Substance: HYDROXYCHLOROQUINE
     Indication: PRODUCT USED FOR UNKNOWN INDICATION
     Dates: start: 200304, end: 200304
  5. ENBREL [Concomitant]
     Active Substance: ETANERCEPT
     Indication: PRODUCT USED FOR UNKNOWN INDICATION
     Dates: start: 200706, end: 200812
  6. ROACTEMRA [Concomitant]
     Active Substance: TOCILIZUMAB
     Indication: PRODUCT USED FOR UNKNOWN INDICATION
     Dates: start: 201006, end: 201009
  7. MABTHERA [Concomitant]
     Active Substance: RITUXIMAB
     Dates: start: 201309, end: 201309
  8. MABTHERA [Concomitant]
     Active Substance: RITUXIMAB
     Dates: start: 201202, end: 201202
  9. MTX [Suspect]
     Active Substance: METHOTREXATE SODIUM
     Route: 065
     Dates: start: 2016, end: 2017
  10. MABTHERA [Concomitant]
     Active Substance: RITUXIMAB
     Dates: start: 201607, end: 201607
  11. ORENCIA [Concomitant]
     Active Substance: ABATACEPT
     Indication: PRODUCT USED FOR UNKNOWN INDICATION
     Dates: start: 200904, end: 2009
  12. ORENCIA [Concomitant]
     Active Substance: ABATACEPT
     Dates: start: 2009, end: 201005
  13. MABTHERA [Concomitant]
     Active Substance: RITUXIMAB
     Dates: start: 201108, end: 201108
  14. MABTHERA [Concomitant]
     Active Substance: RITUXIMAB
     Dates: start: 201505, end: 201505
  15. MTX [Suspect]
     Active Substance: METHOTREXATE SODIUM
     Route: 065
     Dates: start: 2017
  16. MABTHERA [Concomitant]
     Active Substance: RITUXIMAB
     Indication: PRODUCT USED FOR UNKNOWN INDICATION
     Dates: start: 201101, end: 201101
  17. MABTHERA [Concomitant]
     Active Substance: RITUXIMAB
     Dates: start: 201211, end: 201211
  18. MABTHERA [Concomitant]
     Active Substance: RITUXIMAB
     Dates: start: 201408, end: 201408

REACTIONS (1)
  - Chronic obstructive pulmonary disease [Unknown]

NARRATIVE: CASE EVENT DATE: 20170715
